FAERS Safety Report 8772256 (Version 3)
Quarter: 2013Q2

REPORT INFORMATION
  Report Type: Report from Study
  Country: JP (occurrence: JP)
  Receive Date: 20120905
  Receipt Date: 20130521
  Transmission Date: 20140414
  Serious: Yes (Other)
  Sender: FDA-Public Use
  Company Number: JP-009507513-1208JPN009709

PATIENT
  Age: 43 Year
  Sex: Male
  Weight: 78 kg

DRUGS (13)
  1. PEGINTRON [Suspect]
     Indication: CHRONIC HEPATITIS C
     Dosage: 1.5 MICROGRAM PER KILOGRAM/WEEK
     Route: 058
     Dates: start: 20120801, end: 20120828
  2. PEGINTRON [Suspect]
     Dosage: 0.75 MICROGRAM PER KILOGRAM/WEEK
     Route: 058
     Dates: start: 20120829, end: 20120912
  3. PEGINTRON [Suspect]
     Dosage: 1.0 MICROGRAM PER KILOGRAM/WEEK
     Route: 058
     Dates: start: 20120919, end: 20120919
  4. PEGINTRON [Suspect]
     Dosage: 1.25 MICROGRAM PER KILOGRAM/WEEK
     Route: 058
     Dates: start: 20120926
  5. PEGINTRON [Suspect]
     Dosage: 1.5 MICROGRAMS/KG/WEEK
     Dates: start: 20121031, end: 20121114
  6. PEGINTRON [Suspect]
     Dosage: 0.75 MICROGRAMS/KG/WEEK
     Dates: start: 20121121, end: 20130109
  7. REBETOL [Suspect]
     Indication: CHRONIC HEPATITIS C
     Dosage: 800 MG, UNK
     Route: 048
     Dates: start: 20120801, end: 20120828
  8. REBETOL [Suspect]
     Dosage: 600 MG, QD
     Route: 048
     Dates: start: 20120829, end: 20120911
  9. REBETOL [Suspect]
     Dosage: 400 MG, QD
     Route: 048
     Dates: start: 20120912
  10. TELAVIC [Suspect]
     Indication: CHRONIC HEPATITIS C
     Dosage: 2250 MG, QD
     Route: 048
     Dates: start: 20120801, end: 20120911
  11. TELAVIC [Suspect]
     Dosage: 1500 MG, QD
     Route: 048
     Dates: start: 20120912, end: 20121023
  12. FEBURIC [Concomitant]
     Indication: HYPERURICAEMIA
     Dosage: 1 DF, QD
     Route: 048
  13. FEBURIC [Concomitant]
     Dosage: 10 MG, UNK
     Route: 048
     Dates: start: 20120829, end: 20121113

REACTIONS (1)
  - Rash [Recovered/Resolved]
